FAERS Safety Report 10776142 (Version 1)
Quarter: 2015Q1

REPORT INFORMATION
  Report Type: Spontaneous
  Country: US (occurrence: None)
  Receive Date: 20150205
  Receipt Date: 20150205
  Transmission Date: 20150721
  Serious: Yes (Life-Threatening, Hospitalization, Disabling, Other)
  Sender: FDA-Public Use
  Company Number: None

PATIENT
  Age: 33 Year
  Sex: Male
  Weight: 94.8 kg

DRUGS (2)
  1. CODEINE [Suspect]
     Active Substance: CODEINE
     Indication: NASOPHARYNGITIS
     Route: 048
     Dates: start: 20150119, end: 20150119
  2. CODEINE [Suspect]
     Active Substance: CODEINE
     Indication: COUGH
     Route: 048
     Dates: start: 20150119, end: 20150119

REACTIONS (8)
  - Paranoia [None]
  - Negative thoughts [None]
  - Headache [None]
  - Accidental overdose [None]
  - Thinking abnormal [None]
  - Dyspnoea [None]
  - Loss of consciousness [None]
  - Feeling abnormal [None]

NARRATIVE: CASE EVENT DATE: 20150119
